FAERS Safety Report 20045221 (Version 1)
Quarter: 2021Q4

REPORT INFORMATION
  Report Type: Spontaneous
  Country: CN (occurrence: CN)
  Receive Date: 20211108
  Receipt Date: 20211108
  Transmission Date: 20220304
  Serious: Yes (Hospitalization, Other)
  Sender: FDA-Public Use
  Company Number: CN-PFIZER INC-202101484278

PATIENT
  Age: 26 Year
  Sex: Male
  Weight: 69 kg

DRUGS (1)
  1. METHOTREXATE [Suspect]
     Active Substance: METHOTREXATE
     Indication: Lymphoma
     Dosage: 500 MG, (500MG THE FIRST HOUR, METHOTREXATE 4000MG 2-12 HOUR (AS REPORTED)
     Route: 041
     Dates: start: 20210924, end: 20210924

REACTIONS (1)
  - Dermatitis allergic [Recovering/Resolving]

NARRATIVE: CASE EVENT DATE: 20210930
